FAERS Safety Report 13552641 (Version 1)
Quarter: 2017Q2

REPORT INFORMATION
  Report Type: Spontaneous
  Country: US (occurrence: US)
  Receive Date: 20170516
  Receipt Date: 20170516
  Transmission Date: 20170830
  Serious: Yes (Hospitalization)
  Sender: FDA-Public Use
  Company Number: None

PATIENT
  Age: 8 Year
  Sex: Male

DRUGS (1)
  1. NORDITROPIN [Suspect]
     Active Substance: SOMATROPIN

REACTIONS (4)
  - Drug hypersensitivity [None]
  - Rash [None]
  - Hypersensitivity [None]
  - Eye swelling [None]

NARRATIVE: CASE EVENT DATE: 20170401
